FAERS Safety Report 8286338 (Version 4)
Quarter: 2016Q3

REPORT INFORMATION
  Report Type: Spontaneous
  Country: JP (occurrence: JP)
  Receive Date: 20111213
  Receipt Date: 20160826
  Transmission Date: 20161109
  Serious: Yes (Other)
  Sender: FDA-Public Use
  Company Number: JP-GLAXOSMITHKLINE-B0768028A

PATIENT
  Age: 37 Year
  Sex: Female

DRUGS (7)
  1. JZOLOFT [Concomitant]
     Active Substance: SERTRALINE HYDROCHLORIDE
     Indication: ANXIETY
     Route: 048
     Dates: start: 20111031
  2. DOGMATYL [Concomitant]
     Active Substance: SULPIRIDE
     Indication: DECREASED APPETITE
     Route: 048
     Dates: start: 20111031, end: 20111123
  3. REMERON [Concomitant]
     Active Substance: MIRTAZAPINE
     Indication: DEPRESSIVE SYMPTOM
     Route: 048
     Dates: start: 20111031, end: 20111107
  4. SEPAZON [Concomitant]
     Active Substance: CLOXAZOLAM
     Indication: ANXIETY
     Route: 048
     Dates: start: 20111031
  5. RHYTHMY [Concomitant]
     Active Substance: RILMAZAFONE HYDROCHLORIDE
     Indication: INSOMNIA
     Route: 048
     Dates: start: 20111031
  6. LAMOTRIGINE. [Suspect]
     Active Substance: LAMOTRIGINE
     Indication: DEPRESSION
     Route: 048
     Dates: start: 20111031, end: 20111123
  7. REMERON [Concomitant]
     Active Substance: MIRTAZAPINE
     Indication: DEPRESSIVE SYMPTOM
     Route: 048
     Dates: start: 20111108

REACTIONS (10)
  - Obstructive airways disorder [Recovered/Resolved]
  - Swelling face [Recovering/Resolving]
  - Eosinophil count increased [Unknown]
  - Pharyngeal erythema [Unknown]
  - Asthenia [Unknown]
  - Urticaria [Unknown]
  - Pyrexia [Unknown]
  - Pharyngitis [Unknown]
  - Rash [Recovered/Resolved]
  - Oropharyngeal pain [Unknown]

NARRATIVE: CASE EVENT DATE: 20111116
